FAERS Safety Report 8618968-6 (Version None)
Quarter: 2012Q3

REPORT INFORMATION
  Report Type: 
  Country: None (occurrence: None)
  Receive Date: 20120824
  Receipt Date: 20120816
  Transmission Date: 20120928
  Serious: Yes (Other)
  Sender: FDA-Public Use
  Company Number: PHHY2012BR071175

PATIENT
  Sex: Female
  Weight: 97 kg

DRUGS (5)
  1. FORMOTEROL FUMARATE [Suspect]
     Dosage: UNK UKN, UNK
  2. AMINOPHYLLIN [Concomitant]
     Indication: BRONCHITIS
     Dosage: 1 DF, BID
     Route: 048
  3. BEROTEC [Concomitant]
     Dosage: UNK UKN, UNK
  4. ATROVENT [Concomitant]
     Dosage: UNK UKN, UNK
  5. FORMOTEROL FUMARATE [Suspect]
     Indication: CHRONIC OBSTRUCTIVE PULMONARY DISEASE
     Dosage: 1 DF, TID

REACTIONS (8)
  - ALLERGIC BRONCHITIS [None]
  - ASPHYXIA [None]
  - INFLUENZA [None]
  - PAROSMIA [None]
  - DYSPNOEA [None]
  - ASTHMA [None]
  - PAIN [None]
  - FATIGUE [None]
